FAERS Safety Report 7607673-0 (Version None)
Quarter: 2011Q3

REPORT INFORMATION
  Report Type: 
  Country: None (occurrence: None)
  Receive Date: 20110713
  Receipt Date: 20110411
  Transmission Date: 20111222
  Serious: Yes (Hospitalization, Other)
  Sender: FDA-Public Use
  Company Number: PHHY2011US30478

PATIENT
  Sex: Male

DRUGS (1)
  1. SANDOSTATIN LAR [Suspect]
     Indication: ACROMEGALY
     Dosage: 20 MG, QMO
     Route: 030
     Dates: start: 20110329

REACTIONS (5)
  - DIZZINESS [None]
  - EYE PAIN [None]
  - NAUSEA [None]
  - HEADACHE [None]
  - INSULIN-LIKE GROWTH FACTOR INCREASED [None]
